FAERS Safety Report 4435125-8 (Version None)
Quarter: 2004Q3

REPORT INFORMATION
  Report Type: 
  Country: None (occurrence: None)
  Receive Date: 20040826
  Receipt Date: 20040811
  Transmission Date: 20050211
  Serious: Yes (Hospitalization)
  Sender: FDA-Public Use
  Company Number: F01200402435

PATIENT
  Age: 68 Year
  Sex: Male

DRUGS (2)
  1. OXALIPLATIN - SOLUTION [Suspect]
     Indication: PANCREATIC CARCINOMA
     Route: 042
     Dates: start: 20040723, end: 20040723
  2. FLUOROURACIL [Suspect]
     Dosage: 475 MG/DAY, 7 DAYS A WEEK FOR 5 WEEK
     Route: 042
     Dates: end: 20040723

REACTIONS (1)
  - OESOPHAGITIS [None]
